FAERS Safety Report 11556620 (Version 1)
Quarter: 2015Q3

REPORT INFORMATION
  Report Type: Spontaneous
  Country: US (occurrence: US)
  Receive Date: 20150925
  Receipt Date: 20150925
  Transmission Date: 20151125
  Serious: No
  Sender: FDA-Public Use
  Company Number: US-009507513-1509USA013211

PATIENT
  Age: 27 Year
  Sex: Female
  Weight: 79.37 kg

DRUGS (1)
  1. NEXPLANON [Suspect]
     Active Substance: ETONOGESTREL
     Indication: CONTRACEPTION
     Dosage: 3 YEAR IMPLANT IN THE LEFT ARM
     Route: 059
     Dates: start: 20130425

REACTIONS (4)
  - Mood altered [Unknown]
  - Amenorrhoea [Recovered/Resolved]
  - Hypomenorrhoea [Unknown]
  - Expired product administered [Unknown]

NARRATIVE: CASE EVENT DATE: 201304
